FAERS Safety Report 18394941 (Version 1)
Quarter: 2020Q4

REPORT INFORMATION
  Report Type: Spontaneous
  Country: US (occurrence: US)
  Receive Date: 20201016
  Receipt Date: 20201016
  Transmission Date: 20210114
  Serious: Yes (Death, Hospitalization, Other)
  Sender: FDA-Public Use
  Company Number: US-GILEAD-2020-0499414

PATIENT
  Age: 53 Year
  Sex: Female
  Weight: 198 kg

DRUGS (26)
  1. ASCORBIC ACID. [Concomitant]
     Active Substance: ASCORBIC ACID
  2. FUROSEMIDE. [Concomitant]
     Active Substance: FUROSEMIDE
  3. SODIUM BICARBONATE. [Concomitant]
     Active Substance: SODIUM BICARBONATE
  4. ACETAMINOPHEN. [Concomitant]
     Active Substance: ACETAMINOPHEN
  5. PATIROMER SORBITEX CALCIUM [Concomitant]
     Active Substance: PATIROMER
  6. VANCOMYCIN [Concomitant]
     Active Substance: VANCOMYCIN
  7. ATORVASTATIN [Concomitant]
     Active Substance: ATORVASTATIN
  8. CHOLECALCIFEROL [Concomitant]
     Active Substance: CHOLECALCIFEROL
  9. INSULIN REGULAR [INSULIN BOVINE] [Concomitant]
     Active Substance: INSULIN BEEF
  10. METOPROLOL. [Concomitant]
     Active Substance: METOPROLOL
  11. MORPHINE SULFATE. [Concomitant]
     Active Substance: MORPHINE SULFATE
  12. REMDESIVIR. [Suspect]
     Active Substance: REMDESIVIR
     Indication: COVID-19 PNEUMONIA
     Dosage: 200 MG, ONCE
     Route: 042
     Dates: start: 20200802, end: 20200802
  13. APIXABAN [Concomitant]
     Active Substance: APIXABAN
  14. CEFAZOLIN [Concomitant]
     Active Substance: CEFAZOLIN
  15. MUPIROCIN. [Concomitant]
     Active Substance: MUPIROCIN
  16. PIPERACILLIN AND TAZOBACTAM [Concomitant]
     Active Substance: PIPERACILLIN SODIUM\TAZOBACTAM SODIUM
  17. REMDESIVIR. [Suspect]
     Active Substance: REMDESIVIR
     Dosage: 100 MG, QD
     Route: 042
     Dates: start: 20200803, end: 20200807
  18. CHLORHEXIDINE [Concomitant]
     Active Substance: CHLORHEXIDINE
  19. DEXAMETHASONE. [Concomitant]
     Active Substance: DEXAMETHASONE
  20. DILTIAZEM. [Concomitant]
     Active Substance: DILTIAZEM
  21. MIDAZOLAM. [Concomitant]
     Active Substance: MIDAZOLAM
  22. ZINC SULFATE. [Concomitant]
     Active Substance: ZINC SULFATE
  23. DEXMEDETOMIDINE. [Concomitant]
     Active Substance: DEXMEDETOMIDINE
  24. NOREPINEPHRINE. [Concomitant]
     Active Substance: NOREPINEPHRINE
  25. ONDANSETRON [Concomitant]
     Active Substance: ONDANSETRON
  26. PROPOFOL. [Concomitant]
     Active Substance: PROPOFOL

REACTIONS (1)
  - Cardiac arrest [Fatal]

NARRATIVE: CASE EVENT DATE: 20200820
